FAERS Safety Report 7028740-9 (Version None)
Quarter: 2010Q4

REPORT INFORMATION
  Report Type: 
  Country: None (occurrence: None)
  Receive Date: 20101004
  Receipt Date: 20101004
  Transmission Date: 20110411
  Serious: Yes (Other)
  Sender: FDA-Public Use
  Company Number: None

PATIENT
  Age: 16 Year
  Sex: Female
  Weight: 63.5036 kg

DRUGS (1)
  1. TOPAMAX [Suspect]
     Indication: HEADACHE
     Dosage: 25 MG ONE PER DAY AT BED PO
     Route: 048
     Dates: start: 20100825, end: 20100828

REACTIONS (2)
  - HYPOAESTHESIA [None]
  - VISION BLURRED [None]
